FAERS Safety Report 15662740 (Version 3)
Quarter: 2020Q1

REPORT INFORMATION
  Report Type: Spontaneous
  Country: US (occurrence: US)
  Receive Date: 20181127
  Receipt Date: 20200108
  Transmission Date: 20200409
  Serious: Yes (Other)
  Sender: FDA-Public Use
  Company Number: US-SA-2018SA164775

PATIENT
  Age: 64 Year
  Sex: Female

DRUGS (8)
  1. CYTOXAN [Concomitant]
     Active Substance: CYCLOPHOSPHAMIDE
     Indication: BREAST CANCER FEMALE
     Dosage: UNK UNK, UNK
     Route: 065
  2. NEOSAR [Concomitant]
     Active Substance: CYCLOPHOSPHAMIDE
     Indication: BREAST CANCER FEMALE
     Dosage: UNK
     Route: 065
  3. TAXOTERE [Suspect]
     Active Substance: DOCETAXEL
     Indication: BREAST CANCER FEMALE
     Dosage: 150 MG, Q3W
     Route: 042
     Dates: start: 20100824, end: 20100824
  4. TAXOTERE [Suspect]
     Active Substance: DOCETAXEL
     Dosage: 150 MG, Q3W
     Route: 042
     Dates: start: 20101207, end: 20101207
  5. ADRIAMYCIN [Concomitant]
     Active Substance: DOXORUBICIN HYDROCHLORIDE
     Indication: BREAST CANCER FEMALE
     Dosage: UNK UNK, UNK
     Route: 065
  6. FEMARA [Concomitant]
     Active Substance: LETROZOLE
     Dosage: UNK
     Route: 065
     Dates: start: 2007
  7. LETROZOLE. [Concomitant]
     Active Substance: LETROZOLE
     Dosage: UNK
     Route: 065
     Dates: start: 2007
  8. VERAPAMIL [Concomitant]
     Active Substance: VERAPAMIL HYDROCHLORIDE
     Dosage: UNK
     Route: 065
     Dates: start: 1997

REACTIONS (1)
  - Alopecia [Not Recovered/Not Resolved]

NARRATIVE: CASE EVENT DATE: 20110607
